FAERS Safety Report 9033272 (Version 2)
Quarter: 2013Q4

REPORT INFORMATION
  Report Type: Spontaneous
  Country: GB (occurrence: GB)
  Receive Date: 20130128
  Receipt Date: 20131025
  Transmission Date: 20140711
  Serious: Yes (Other)
  Sender: FDA-Public Use
  Company Number: GB-WATSON-2013-01253

PATIENT
  Age: 30 Year
  Sex: Female
  Weight: 68 kg

DRUGS (5)
  1. VENLAFAXINE HYDROCHLORIDE (UNKNOWN) [Suspect]
     Indication: ANXIETY
     Dosage: 225 MG, DAILY
     Route: 048
  2. PROPRANOLOL (UNKNOWN) [Suspect]
     Indication: ANXIETY
     Dosage: 80 MG, UNKNOWN
     Route: 048
  3. AMITRIPTYLINE [Suspect]
     Indication: ANXIETY
     Dosage: 20 MG, UNKNOWN
     Route: 048
  4. ZOPICLONE (UNKNOWN) [Suspect]
     Indication: ANXIETY
     Dosage: 7.5 MG, UNKNOWN
     Route: 048
  5. DULOXETINE [Concomitant]
     Indication: PRODUCT USED FOR UNKNOWN INDICATION
     Dosage: UNK
     Route: 065

REACTIONS (2)
  - Premature separation of placenta [Unknown]
  - Abdominal pain [Unknown]
